FAERS Safety Report 6269444-X (Version None)
Quarter: 2009Q3

REPORT INFORMATION
  Report Type: 
  Country: None (occurrence: None)
  Receive Date: 20090715
  Receipt Date: 20090624
  Transmission Date: 20100115
  Serious: Yes (Death, Life-Threatening, Other)
  Sender: FDA-Public Use
  Company Number: FR-BAXTER-2009BH010745

PATIENT
  Age: 67 Year
  Sex: Female

DRUGS (5)
  1. ENDOXAN BAXTER [Suspect]
     Indication: BREAST CANCER METASTATIC
     Route: 065
     Dates: start: 20081022, end: 20081126
  2. OLICLINOMEL [Suspect]
     Indication: PARENTERAL NUTRITION
     Route: 065
     Dates: start: 20081209, end: 20081213
  3. METHYLPREDNISOLONE [Suspect]
     Indication: DRUG USE FOR UNKNOWN INDICATION
     Route: 065
     Dates: start: 20081205
  4. FLUOROURACIL [Suspect]
     Indication: BREAST CANCER METASTATIC
     Dates: start: 20081022
  5. METHOTREXATE [Suspect]
     Indication: BREAST CANCER METASTATIC
     Route: 065
     Dates: start: 20081022

REACTIONS (5)
  - BONE MARROW FAILURE [None]
  - CONDITION AGGRAVATED [None]
  - EYE PAIN [None]
  - HYPERGLYCAEMIA [None]
  - MUCOSAL INFLAMMATION [None]
